FAERS Safety Report 8202529-7 (Version None)
Quarter: 2012Q1

REPORT INFORMATION
  Report Type: 
  Country: None (occurrence: None)
  Receive Date: 20120312
  Receipt Date: 20120306
  Transmission Date: 20120608
  Serious: Yes (Other)
  Sender: FDA-Public Use
  Company Number: DE-AMGEN-DEUSP2012007901

PATIENT
  Age: 50 Year
  Sex: Female

DRUGS (11)
  1. CYCLOPHOSPHAMIDE [Concomitant]
     Indication: BREAST CANCER
     Dosage: 600 MG/M2, Q3WK
     Route: 042
     Dates: start: 20111128, end: 20120131
  2. GRANISETRON HYDROCHLORIDE [Concomitant]
     Dosage: 2 MG, UNK
     Route: 048
     Dates: start: 20111128, end: 20120202
  3. MESNA [Concomitant]
     Dosage: 200 MG, Q3WK
     Route: 048
     Dates: start: 20111128, end: 20120131
  4. NEULASTA [Suspect]
     Indication: PROPHYLAXIS
     Dosage: 6 MG, Q3WK
     Route: 058
     Dates: start: 20120111, end: 20120201
  5. DEXAMETHASONE [Concomitant]
     Indication: BREAST CANCER
     Dosage: 8 MG, UNK
     Route: 042
     Dates: start: 20111122, end: 20120131
  6. DEXAMETHASONE [Concomitant]
     Dosage: 4 MG, UNK
     Route: 048
     Dates: start: 20111128, end: 20120202
  7. EMEND [Concomitant]
     Indication: BREAST CANCER
     Dosage: UNK
     Route: 048
     Dates: start: 20111128, end: 20120131
  8. LEVOTHYROXINE SODIUM [Concomitant]
     Indication: BREAST CANCER
     Dosage: 75 MG, UNK
     Route: 048
  9. GRANISETRON HYDROCHLORIDE [Concomitant]
     Indication: BREAST CANCER
     Dosage: 3 MG, Q3WK
     Route: 042
     Dates: start: 20111128, end: 20120131
  10. EPIRUBICIN [Concomitant]
     Indication: BREAST CANCER
     Dosage: 90 MG/M2, Q3WK
     Route: 042
     Dates: start: 20111128, end: 20120131
  11. MESNA [Concomitant]
     Indication: BREAST CANCER
     Dosage: 400 MG, Q3WK
     Route: 048
     Dates: start: 20111128, end: 20120131

REACTIONS (4)
  - SWELLING [None]
  - DYSPNOEA [None]
  - ERYTHEMA [None]
  - ANAPHYLACTIC SHOCK [None]
